FAERS Safety Report 8516079-1 (Version None)
Quarter: 2012Q3

REPORT INFORMATION
  Report Type: 
  Country: None (occurrence: None)
  Receive Date: 20120717
  Receipt Date: 20120713
  Transmission Date: 20120928
  Serious: Yes (Other)
  Sender: FDA-Public Use
  Company Number: TH-ABBOTT-11P-155-0706747-00

PATIENT
  Sex: Female
  Weight: 34 kg

DRUGS (4)
  1. MYCOPHENOLATE MEFETIL [Concomitant]
     Indication: IMMUNOSUPPRESSION
     Dosage: UNKNOWN
  2. SIMVASTATIN [Concomitant]
     Indication: PRODUCT USED FOR UNKNOWN INDICATION
  3. CYCLOSPORINE [Suspect]
     Indication: IMMUNOSUPPRESSION
     Dates: start: 20070808, end: 20071118
  4. PREDNISOLONE [Concomitant]
     Indication: IMMUNOSUPPRESSION
     Dosage: UNKNOWN

REACTIONS (2)
  - CHRONIC ALLOGRAFT NEPHROPATHY [None]
  - MYOPATHY [None]
